FAERS Safety Report 8886428 (Version 1)
Quarter: 2012Q4

REPORT INFORMATION
  Report Type: 
  Country: US (occurrence: US)
  Receive Date: 20121105
  Receipt Date: 20121105
  Transmission Date: 20130627
  Serious: No
  Sender: FDA-Public Use
  Company Number: US-PFIZER INC-2012274887

PATIENT
  Age: 47 Year
  Sex: Female
  Weight: 113.38 kg

DRUGS (3)
  1. ADVIL [Suspect]
     Indication: BACK PAIN (WITHOUT RADIATION)
     Dosage: UNK, 1x/day
     Dates: start: 201210, end: 20121102
  2. METFORMIN [Concomitant]
     Indication: DIABETES
     Dosage: UNK
  3. CALCIUM [Concomitant]
     Dosage: UNK

REACTIONS (3)
  - Expired drug administered [Unknown]
  - Abdominal discomfort [Unknown]
  - Abdominal pain upper [Unknown]
